FAERS Safety Report 17404270 (Version 5)
Quarter: 2025Q3

REPORT INFORMATION
  Report Type: Spontaneous
  Country: EU (occurrence: EU)
  Receive Date: 20200211
  Receipt Date: 20250702
  Transmission Date: 20251021
  Serious: Yes (Other)
  Sender: UCB
  Company Number: EU-UCBSA-2020006070

PATIENT
  Age: 18 Year
  Sex: Male

DRUGS (10)
  1. KEPPRA [Suspect]
     Active Substance: LEVETIRACETAM
     Indication: Epilepsy
     Dates: start: 2017, end: 201806
  2. KEPPRA [Suspect]
     Active Substance: LEVETIRACETAM
     Indication: Idiopathic generalised epilepsy
     Dates: start: 201806, end: 201807
  3. KEPPRA [Suspect]
     Active Substance: LEVETIRACETAM
     Dates: start: 201901
  4. KEPPRA [Suspect]
     Active Substance: LEVETIRACETAM
     Dates: start: 2017
  5. KEPPRA [Suspect]
     Active Substance: LEVETIRACETAM
     Dates: start: 2018
  6. HYDROXYZINE HYDROCHLORIDE [Suspect]
     Active Substance: HYDROXYZINE HYDROCHLORIDE
     Indication: Aggression
     Dosage: 60 MILLIGRAM, ONCE DAILY (QD), 60 MILLIGRAM, ONCE A DAY,60 MILLIGRAM DAILY; 60 MG/D IN 3 DIVIDED DOS
     Dates: start: 2017
  7. HYDROXYZINE HYDROCHLORIDE [Suspect]
     Active Substance: HYDROXYZINE HYDROCHLORIDE
     Indication: Off label use
  8. VALPROATE SODIUM [Suspect]
     Active Substance: VALPROATE SODIUM
     Indication: Epilepsy
     Dates: end: 201804
  9. VALPROATE SODIUM [Suspect]
     Active Substance: VALPROATE SODIUM
     Indication: Idiopathic generalised epilepsy
  10. RISPERIDONE [Suspect]
     Active Substance: RISPERIDONE
     Indication: Aggression
     Dates: start: 2017

REACTIONS (4)
  - Aggression [Recovering/Resolving]
  - Hypersexuality [Recovering/Resolving]
  - Off label use [Unknown]
  - Drug ineffective [Unknown]

NARRATIVE: CASE EVENT DATE: 20170101
